FAERS Safety Report 15483077 (Version 1)
Quarter: 2018Q4

REPORT INFORMATION
  Report Type: Spontaneous
  Country: US (occurrence: US)
  Receive Date: 20181010
  Receipt Date: 20181010
  Transmission Date: 20190205
  Serious: No
  Sender: FDA-Public Use
  Company Number: US-BIOCOMPATIBLES UK LTD-2018BTG01719

PATIENT
  Age: 50 Year
  Sex: Male

DRUGS (5)
  1. LAMICTAL [Concomitant]
     Active Substance: LAMOTRIGINE
     Indication: BIPOLAR DISORDER
     Dosage: 200 MG, QD
     Dates: start: 2003
  2. CROFAB [Suspect]
     Active Substance: CROTALIDAE POLYVALENT IMMUNE FAB (OVINE)
     Dosage: UNK
  3. MORPHINE [Concomitant]
     Active Substance: MORPHINE
     Indication: PRODUCT USED FOR UNKNOWN INDICATION
     Dosage: UNK
     Route: 042
     Dates: start: 201806
  4. CROFAB [Suspect]
     Active Substance: CROTALIDAE POLYVALENT IMMUNE FAB (OVINE)
     Indication: SNAKE BITE
     Dosage: 4 VIALS, UNK
     Dates: start: 201806, end: 201806
  5. LAMICTAL [Concomitant]
     Active Substance: LAMOTRIGINE
     Indication: MANIA

REACTIONS (6)
  - Swelling [Recovering/Resolving]
  - Body temperature increased [Recovering/Resolving]
  - Constipation [Recovered/Resolved]
  - Neuralgia [Recovering/Resolving]
  - Gait inability [Recovered/Resolved]
  - Feeling cold [Recovering/Resolving]

NARRATIVE: CASE EVENT DATE: 201806
